FAERS Safety Report 4732176-0 (Version None)
Quarter: 2005Q3

REPORT INFORMATION
  Report Type: 
  Country: None (occurrence: None)
  Receive Date: 20050802
  Receipt Date: 20050725
  Transmission Date: 20060218
  Serious: Yes (Life-Threatening, Hospitalization)
  Sender: FDA-Public Use
  Company Number: CN-MERCK-0507CHN00019

PATIENT
  Age: 72 Year
  Sex: Female

DRUGS (10)
  1. ZOCOR [Suspect]
     Indication: LIPIDS INCREASED
     Route: 048
     Dates: start: 20030101, end: 20050708
  2. ZOCOR [Suspect]
     Route: 048
     Dates: start: 20050709, end: 20050720
  3. ZOCOR [Suspect]
     Indication: DIABETES MELLITUS
     Route: 048
     Dates: start: 20030101, end: 20050708
  4. ZOCOR [Suspect]
     Route: 048
     Dates: start: 20050709, end: 20050720
  5. METFORMIN [Concomitant]
     Indication: DIABETES MELLITUS
     Route: 048
     Dates: start: 20030101
  6. ASPIRIN [Concomitant]
     Route: 048
     Dates: start: 20030101
  7. FOSINOPRIL SODIUM [Concomitant]
     Indication: HYPERTENSION
     Route: 048
     Dates: start: 20030101
  8. DILTIAZEM HYDROCHLORIDE [Concomitant]
     Indication: HYPERTENSION
     Route: 048
     Dates: start: 20030101
  9. INDAPAMIDE [Concomitant]
     Indication: HYPERTENSION
     Route: 048
     Dates: start: 20030101
  10. TRIMETAZIDINE [Concomitant]
     Route: 048

REACTIONS (2)
  - DIABETES MELLITUS [None]
  - RHABDOMYOLYSIS [None]
